FAERS Safety Report 7949045-5 (Version None)
Quarter: 2011Q4

REPORT INFORMATION
  Report Type: 
  Country: None (occurrence: None)
  Receive Date: 20111130
  Receipt Date: 20111019
  Transmission Date: 20120403
  Serious: No
  Sender: FDA-Public Use
  Company Number: US-BRISTOL-MYERS SQUIBB COMPANY-16180531

PATIENT
  Age: 54 Year
  Sex: Female

DRUGS (2)
  1. VICTOZA [Suspect]
  2. KOMBIGLYZE XR [Suspect]

REACTIONS (4)
  - LETHARGY [None]
  - HEADACHE [None]
  - BLOOD GLUCOSE INCREASED [None]
  - MALAISE [None]
